FAERS Safety Report 4358955-X (Version None)
Quarter: 2004Q2

REPORT INFORMATION
  Report Type: 
  Country: None (occurrence: None)
  Receive Date: 20040517
  Receipt Date: 20040428
  Transmission Date: 20050107
  Serious: Yes (Hospitalization)
  Sender: FDA-Public Use
  Company Number: US-MERCK-0404USA02431

PATIENT
  Age: 67 Year
  Sex: Female
  Weight: 58 kg

DRUGS (5)
  1. ADVAIR DISKUS 100/50 [Concomitant]
     Indication: ASTHMA
     Route: 055
  2. ASACOL [Concomitant]
     Indication: COLITIS ULCERATIVE
     Route: 065
     Dates: start: 20030101
  3. SINGULAIR [Suspect]
     Indication: ASTHMA
     Route: 048
     Dates: end: 20040201
  4. ACTOS [Concomitant]
     Indication: DIABETES MELLITUS
     Route: 065
  5. PREDNISONE [Concomitant]
     Route: 065

REACTIONS (12)
  - ALLERGIC GRANULOMATOUS ANGIITIS [None]
  - CHOLESTASIS [None]
  - COLITIS ULCERATIVE [None]
  - DIABETES MELLITUS [None]
  - EOSINOPHILIC PNEUMONIA [None]
  - JAUNDICE CHOLESTATIC [None]
  - PANCREATIC CARCINOMA [None]
  - PLATELET COUNT INCREASED [None]
  - SYNCOPE [None]
  - UTERINE LEIOMYOMA [None]
  - WEIGHT DECREASED [None]
  - WHITE BLOOD CELL COUNT INCREASED [None]
